FAERS Safety Report 7564610-5 (Version None)
Quarter: 2011Q2

REPORT INFORMATION
  Report Type: 
  Country: None (occurrence: None)
  Receive Date: 20110622
  Receipt Date: 20100902
  Transmission Date: 20111010
  Serious: Yes (Other)
  Sender: FDA-Public Use
  Company Number: US-MYLANLABS-2010S1012155

PATIENT
  Age: 16 Year
  Sex: Female

DRUGS (9)
  1. CLONIDINE [Concomitant]
  2. CLOZAPINE [Suspect]
     Dates: start: 20100722, end: 20100729
  3. CLOZAPINE [Suspect]
     Dates: start: 20100630, end: 20100721
  4. VITAMIN TAB [Concomitant]
  5. CLARITIN /00917501/ [Concomitant]
  6. PROAIR HFA [Concomitant]
  7. CLONIDINE [Concomitant]
  8. CLOZAPINE [Suspect]
     Dates: start: 20100722, end: 20100729
  9. MELATONIN [Concomitant]

REACTIONS (1)
  - GRANULOCYTOPENIA [None]
